FAERS Safety Report 9236628 (Version 2)
Quarter: 2013Q2

REPORT INFORMATION
  Report Type: Spontaneous
  Country: NL (occurrence: None)
  Receive Date: 20130415
  Receipt Date: 20130506
  Transmission Date: 20140414
  Serious: Yes (Hospitalization)
  Sender: FDA-Public Use
  Company Number: NL-20130010

PATIENT
  Sex: Female

DRUGS (1)
  1. HEXABRIX [Suspect]
     Indication: VASCULAR CATHETERISATION
     Dosage: 200 MLV(200 ML,1 IN 1 D)
     Dates: start: 20130326, end: 20130326

REACTIONS (4)
  - Chills [None]
  - Pyrexia [None]
  - Diarrhoea [None]
  - Chills [None]
